FAERS Safety Report 24397067 (Version 1)
Quarter: 2024Q4

REPORT INFORMATION
  Report Type: Spontaneous
  Country: US (occurrence: None)
  Receive Date: 20241003
  Receipt Date: 20241003
  Transmission Date: 20250115
  Serious: Yes (Hospitalization)
  Sender: Public
  Company Number: None

PATIENT
  Age: 76 Year
  Sex: Male
  Weight: 98 kg

DRUGS (1)
  1. APIXABAN [Suspect]
     Active Substance: APIXABAN
     Indication: Pulmonary embolism
     Dosage: FREQUENCY : TWICE A DAY;?
     Route: 048

REACTIONS (9)
  - Dysuria [None]
  - Flank pain [None]
  - Nausea [None]
  - Vomiting [None]
  - Haemoglobin decreased [None]
  - Pyelonephritis [None]
  - Renal mass [None]
  - Haemorrhage [None]
  - Infection [None]

NARRATIVE: CASE EVENT DATE: 20240404
